FAERS Safety Report 24770724 (Version 1)
Quarter: 2024Q4

REPORT INFORMATION
  Report Type: Spontaneous
  Country: PT (occurrence: None)
  Receive Date: 20241224
  Receipt Date: 20241224
  Transmission Date: 20250114
  Serious: Yes (Other)
  Sender: UNICHEM
  Company Number: PT-Unichem Pharmaceuticals (USA) Inc-UCM202412-001723

PATIENT
  Age: 51 Year
  Sex: Female

DRUGS (8)
  1. TOPIRAMATE [Suspect]
     Active Substance: TOPIRAMATE
     Indication: Product used for unknown indication
  2. TOPIRAMATE [Suspect]
     Active Substance: TOPIRAMATE
     Indication: Migraine
  3. Quetiapine (Non-MAH) [Concomitant]
     Indication: Product used for unknown indication
  4. Quetiapine (Non-MAH) [Concomitant]
     Indication: Migraine
  5. VENLAFAXINE [Concomitant]
     Active Substance: VENLAFAXINE HYDROCHLORIDE
     Indication: Product used for unknown indication
  6. VENLAFAXINE [Concomitant]
     Active Substance: VENLAFAXINE HYDROCHLORIDE
     Indication: Migraine
  7. LEVOTHYROXINE [Concomitant]
     Active Substance: LEVOTHYROXINE
     Indication: Product used for unknown indication
  8. LEVOTHYROXINE [Concomitant]
     Active Substance: LEVOTHYROXINE
     Indication: Dyslipidaemia

REACTIONS (3)
  - Renal tubular acidosis [Recovered/Resolved]
  - Acidosis [Recovered/Resolved]
  - Dyspnoea [Recovered/Resolved]
